FAERS Safety Report 4381188-8 (Version None)
Quarter: 2004Q2

REPORT INFORMATION
  Report Type: 
  Country: None (occurrence: None)
  Receive Date: 20040617
  Receipt Date: 20040617
  Transmission Date: 20050107
  Serious: Yes (Other)
  Sender: FDA-Public Use
  Company Number: None

PATIENT
  Age: 12 Year
  Sex: Female
  Weight: 44.4525 kg

DRUGS (2)
  1. STRATTERA [Suspect]
     Indication: ATTENTION DEFICIT/HYPERACTIVITY DISORDER
     Dosage: 18 MG PO DAILY TO 25 MG PO DAILY
     Route: 048
     Dates: start: 20040414
  2. CONCERTA [Concomitant]

REACTIONS (2)
  - PRURITUS [None]
  - URTICARIA [None]
